FAERS Safety Report 16253221 (Version 2)
Quarter: 2020Q3

REPORT INFORMATION
  Report Type: Spontaneous
  Country: US (occurrence: US)
  Receive Date: 20190429
  Receipt Date: 20200921
  Transmission Date: 20201102
  Serious: No
  Sender: FDA-Public Use
  Company Number: US-SA-2019SA115838

PATIENT

DRUGS (3)
  1. DUPIXENT [Suspect]
     Active Substance: DUPILUMAB
     Dosage: UNK
     Dates: start: 201904
  2. DUPIXENT [Suspect]
     Active Substance: DUPILUMAB
     Indication: DERMATITIS ATOPIC
     Dosage: 300 MG
     Route: 058
     Dates: start: 201809
  3. METHOTREXATE. [Concomitant]
     Active Substance: METHOTREXATE
     Dosage: UNK
     Route: 065
     Dates: start: 20170901

REACTIONS (3)
  - Oral pain [Unknown]
  - Deformity [Unknown]
  - Arthralgia [Unknown]

NARRATIVE: CASE EVENT DATE: 20191001
